FAERS Safety Report 15155506 (Version 5)
Quarter: 2018Q3

REPORT INFORMATION
  Report Type: Report from Study
  Country: US (occurrence: US)
  Receive Date: 20180717
  Receipt Date: 20180912
  Transmission Date: 20181010
  Serious: Yes (Hospitalization)
  Sender: FDA-Public Use
  Company Number: US-ASTRAZENECA-2018SE90653

PATIENT
  Age: 66 Year
  Sex: Male

DRUGS (5)
  1. AMLODIPINE [Concomitant]
     Active Substance: AMLODIPINE BESYLATE
     Indication: HYPERTENSION
     Route: 048
     Dates: start: 20180507
  2. MEDI4736 [Suspect]
     Active Substance: DURVALUMAB
     Indication: HEPATOCELLULAR CARCINOMA
     Route: 042
     Dates: start: 20180625
  3. SODIUM CHLORIDE. [Concomitant]
     Active Substance: SODIUM CHLORIDE
     Indication: FATIGUE
     Dosage: 0.9%
     Route: 042
     Dates: start: 20180702, end: 20180702
  4. ASPIRIN. [Concomitant]
     Active Substance: ASPIRIN
     Indication: CARDIOVASCULAR EVENT PROPHYLAXIS
     Dosage: 81 MG
     Route: 048
     Dates: start: 20180529
  5. HYDROCODONE?ACETAMINOPHEN [Concomitant]
     Active Substance: ACETAMINOPHEN\HYDROCODONE
     Indication: ARTHRALGIA
     Dosage: 10?325 MG
     Route: 048
     Dates: start: 20180529

REACTIONS (2)
  - Failure to thrive [Not Recovered/Not Resolved]
  - Decreased appetite [Not Recovered/Not Resolved]

NARRATIVE: CASE EVENT DATE: 20180630
